FAERS Safety Report 9658520 (Version 4)
Quarter: 2014Q1

REPORT INFORMATION
  Report Type: Other
  Country: GB (occurrence: GB)
  Receive Date: 20131030
  Receipt Date: 20140205
  Transmission Date: 20141002
  Serious: Yes (Hospitalization)
  Sender: FDA-Public Use
  Company Number: GB-TAKEDA-THQ2003A01307

PATIENT
  Sex: 0

DRUGS (7)
  1. IBUPROFEN [Suspect]
     Indication: PRODUCT USED FOR UNKNOWN INDICATION
     Dosage: UNK
     Route: 065
     Dates: start: 20030808, end: 20030808
  2. ZOTON [Suspect]
     Indication: EPILEPSY
     Dosage: UNK
     Route: 048
     Dates: start: 20030808, end: 20030808
  3. ZOTON [Suspect]
     Indication: UNEVALUABLE EVENT
  4. SODIUM VALPROATE [Suspect]
     Indication: EPILEPSY
     Dosage: 6 G, UNK
     Route: 048
     Dates: start: 20030808, end: 20030808
  5. DIAZEPAM [Suspect]
     Indication: EPILEPSY
     Dosage: UNK
     Route: 048
     Dates: start: 20030808, end: 20030808
  6. DIAZEPAM [Suspect]
     Indication: UNEVALUABLE EVENT
  7. CLOZAPINE [Concomitant]
     Indication: PRODUCT USED FOR UNKNOWN INDICATION

REACTIONS (7)
  - Overdose [Recovered/Resolved]
  - Ataxia [Recovered/Resolved]
  - Feeling hot [Recovered/Resolved]
  - Hyperhidrosis [Recovered/Resolved]
  - Disturbance in attention [Recovered/Resolved]
  - Sedation [Unknown]
  - Somnolence [Recovered/Resolved]
